FAERS Safety Report 9049110 (Version 2)
Quarter: 2013Q1

REPORT INFORMATION
  Report Type: Report from Study
  Country: RO (occurrence: RO)
  Receive Date: 20130205
  Receipt Date: 20130326
  Transmission Date: 20140127
  Serious: Yes (Death, Hospitalization, Other)
  Sender: FDA-Public Use
  Company Number: RO-ROCHE-1186424

PATIENT
  Age: 73 None
  Sex: Female
  Weight: 57 kg

DRUGS (3)
  1. RITUXIMAB [Suspect]
     Indication: RHEUMATOID ARTHRITIS
     Route: 042
     Dates: start: 20110704, end: 20120731
  2. RAMIPRIL [Concomitant]
     Indication: HYPERTENSION
     Route: 048
  3. CELECOXIB [Concomitant]
     Indication: RHEUMATOID ARTHRITIS
     Route: 048

REACTIONS (2)
  - Rheumatoid lung [Recovered/Resolved]
  - Respiratory failure [Fatal]
